FAERS Safety Report 4837800-X (Version None)
Quarter: 2005Q4

REPORT INFORMATION
  Report Type: 
  Country: None (occurrence: None)
  Receive Date: 20051128
  Receipt Date: 20050419
  Transmission Date: 20060501
  Serious: Yes (Hospitalization, Disabling, Other)
  Sender: FDA-Public Use
  Company Number: US-MERCK-0504USA03738

PATIENT
  Age: 49 Year
  Sex: Female
  Weight: 130 kg

DRUGS (7)
  1. VIOXX [Suspect]
     Indication: ARTHRITIS
     Route: 048
     Dates: start: 19990901
  2. VIOXX [Suspect]
     Route: 048
     Dates: start: 20040101, end: 20040901
  3. HYDROCHLOROTHIAZIDE AND TRIAMTERENE [Concomitant]
     Route: 065
  4. LOTREL [Concomitant]
     Route: 065
  5. ALTACE [Concomitant]
     Route: 065
     Dates: start: 20030101
  6. CAPTOPRIL [Concomitant]
     Route: 065
  7. ZOLOFT [Concomitant]
     Indication: DEPRESSION
     Route: 065
     Dates: start: 20000101

REACTIONS (18)
  - ARTERIOSCLEROSIS [None]
  - BACK PAIN [None]
  - BIPOLAR DISORDER [None]
  - BLOOD CHOLESTEROL INCREASED [None]
  - BLOOD PRESSURE INCREASED [None]
  - CARDIAC DISORDER [None]
  - CARDIAC MURMUR [None]
  - CEREBROVASCULAR ACCIDENT [None]
  - CHEST PAIN [None]
  - CONVULSION [None]
  - DIZZINESS [None]
  - GASTROOESOPHAGEAL REFLUX DISEASE [None]
  - LOSS OF CONSCIOUSNESS [None]
  - MITRAL VALVE PROLAPSE [None]
  - MYOCARDIAL INFARCTION [None]
  - OBESITY [None]
  - SLEEP APNOEA SYNDROME [None]
  - THROMBOSIS [None]
